FAERS Safety Report 7958529-5 (Version None)
Quarter: 2011Q4

REPORT INFORMATION
  Report Type: 
  Country: None (occurrence: None)
  Receive Date: 20111206
  Receipt Date: 20111130
  Transmission Date: 20120403
  Serious: Yes (Hospitalization)
  Sender: FDA-Public Use
  Company Number: US-BIOGENIDEC-2011BI027218

PATIENT
  Age: 29 Year
  Sex: Female

DRUGS (3)
  1. AVONEX [Suspect]
     Indication: MULTIPLE SCLEROSIS
     Route: 030
     Dates: start: 20100401
  2. BIRTH CONTROL (NOS) [Concomitant]
     Indication: OVARIAN CYST
  3. MULTIPLE MEDICATIONS (NOS) [Concomitant]

REACTIONS (4)
  - OVARIAN CYST [None]
  - OVARIAN CYST TORSION [None]
  - VOMITING [None]
  - LIVER FUNCTION TEST ABNORMAL [None]
